FAERS Safety Report 9814208 (Version 1)
Quarter: 2014Q1

REPORT INFORMATION
  Report Type: Spontaneous
  Country: JP (occurrence: JP)
  Receive Date: 20140113
  Receipt Date: 20140113
  Transmission Date: 20141002
  Serious: Yes (Hospitalization)
  Sender: FDA-Public Use
  Company Number: JP-009507513-1401JPN004651

PATIENT
  Sex: Female

DRUGS (2)
  1. FOSAMAC TABLETS 35MG [Suspect]
     Indication: BONE DENSITY DECREASED
     Dosage: DAILY DOSE UNKNOWN
     Route: 048
     Dates: start: 2012, end: 201304
  2. FOSAMAC TABLETS 35MG [Suspect]
     Dosage: DAILY DOSE UNKNOWN
     Route: 048
     Dates: start: 201310

REACTIONS (3)
  - Atrial fibrillation [Unknown]
  - Compression fracture [Recovered/Resolved]
  - Abdominal discomfort [Unknown]
